FAERS Safety Report 8860210 (Version 2)
Quarter: 2012Q4

REPORT INFORMATION
  Report Type: 
  Country: DE (occurrence: DE)
  Receive Date: 20121025
  Receipt Date: 20121029
  Transmission Date: 20130627
  Serious: No
  Sender: FDA-Public Use
  Company Number: DE-JNJFOC-20121006602

PATIENT
  Sex: Male

DRUGS (2)
  1. REGAINE MAENNER SCHAUM [Suspect]
     Route: 061
  2. REGAINE MAENNER SCHAUM [Suspect]
     Indication: ALOPECIA
     Dosage: dose according to product information leaflet
     Route: 061
     Dates: start: 20120918, end: 20121002

REACTIONS (6)
  - Balance disorder [Recovered/Resolved]
  - Feeling hot [Recovered/Resolved]
  - Headache [Recovered/Resolved]
  - Dizziness [Recovered/Resolved]
  - Burning sensation [Recovered/Resolved]
  - Heart rate increased [Recovered/Resolved]
